FAERS Safety Report 8809956 (Version 3)
Quarter: 2013Q1

REPORT INFORMATION
  Report Type: Spontaneous
  Country: US (occurrence: US)
  Receive Date: 20120926
  Receipt Date: 20130301
  Transmission Date: 20140127
  Serious: Yes (Hospitalization, Other)
  Sender: FDA-Public Use
  Company Number: US-009507513-1206USA02946

PATIENT
  Sex: Female
  Weight: 48.98 kg

DRUGS (7)
  1. FOSAMAX [Suspect]
     Indication: OSTEOPOROSIS
     Dosage: 10 MG, QD
     Route: 048
     Dates: start: 19980112
  2. FOSAMAX [Suspect]
     Indication: OSTEOPENIA
     Dosage: 10 MG, UNK
     Route: 048
     Dates: end: 200901
  3. ALENDRONATE SODIUM [Suspect]
     Indication: OSTEOPOROSIS
     Dosage: 10 MG, UNK
     Dates: start: 20080305, end: 200904
  4. ALENDRONATE SODIUM [Suspect]
     Indication: OSTEOPENIA
     Dosage: 10 MG, UNK
     Dates: end: 201110
  5. ALENDRONATE SODIUM [Suspect]
     Indication: OSTEOPOROSIS
     Dosage: 10 MG, UNK
     Route: 048
     Dates: start: 200905, end: 200912
  6. ALENDRONATE SODIUM [Suspect]
     Indication: OSTEOPENIA
  7. VITAMINS (UNSPECIFIED) [Concomitant]

REACTIONS (28)
  - Intramedullary rod insertion [Unknown]
  - Cataract operation [Unknown]
  - Retinal operation [Unknown]
  - Blood osmolarity decreased [Unknown]
  - Haemorrhagic anaemia [Unknown]
  - Hyponatraemia [Unknown]
  - Tonsillectomy [Unknown]
  - Femur fracture [Unknown]
  - Osteopenia [Unknown]
  - Vitamin D deficiency [Unknown]
  - Hypothyroidism [Unknown]
  - Haemorrhage [Unknown]
  - Blood lactate dehydrogenase increased [Unknown]
  - Vaginal disorder [Unknown]
  - Axillary mass [Unknown]
  - Fibrocystic breast disease [Unknown]
  - Breast mass [Unknown]
  - Blood cholesterol increased [Unknown]
  - Cataract [Unknown]
  - Retinal tear [Unknown]
  - Thyroid neoplasm [Unknown]
  - Breast disorder female [Unknown]
  - Hypertension [Unknown]
  - Heart sounds abnormal [Unknown]
  - Muscle strain [Unknown]
  - Vaginal disorder [Unknown]
  - Autoimmune thyroiditis [Unknown]
  - Avulsion fracture [Unknown]
